FAERS Safety Report 10110655 (Version 3)
Quarter: 2014Q2

REPORT INFORMATION
  Report Type: Report from Study
  Country: US (occurrence: US)
  Receive Date: 20140425
  Receipt Date: 20140529
  Transmission Date: 20141212
  Serious: Yes (Hospitalization, Other)
  Sender: FDA-Public Use
  Company Number: US-ABBVIE-14P-163-1229526-00

PATIENT
  Age: 41 Year
  Sex: Female
  Weight: 43.13 kg

DRUGS (20)
  1. HUMIRA [Suspect]
     Indication: CROHN^S DISEASE
     Dates: start: 2013
  2. HUMIRA [Suspect]
  3. HUMIRA [Suspect]
  4. HUMIRA [Suspect]
     Dates: end: 201312
  5. HUMIRA [Suspect]
  6. HUMIRA [Suspect]
     Dates: start: 20140510
  7. OXYCODONE [Concomitant]
     Indication: PAIN
     Dosage: EVERY 3-6 HOURS
  8. METHOTREXATE [Concomitant]
     Indication: CROHN^S DISEASE
  9. FOLIC ACID [Concomitant]
     Indication: VITAMIN SUPPLEMENTATION
  10. ZOFRAN [Concomitant]
     Indication: NAUSEA
  11. DEXILANT [Concomitant]
     Indication: GASTROOESOPHAGEAL REFLUX DISEASE
  12. ENSURE [Concomitant]
     Indication: NUTRITIONAL SUPPLEMENTATION
  13. ACETAMINOPHEN [Concomitant]
     Indication: PRODUCT USED FOR UNKNOWN INDICATION
  14. KLONOPIN [Concomitant]
     Indication: PRODUCT USED FOR UNKNOWN INDICATION
  15. DULOXETINE [Concomitant]
     Indication: PRODUCT USED FOR UNKNOWN INDICATION
  16. LOMOTIL [Concomitant]
     Indication: CROHN^S DISEASE
  17. VITAMIN B12 [Concomitant]
     Indication: VITAMIN SUPPLEMENTATION
  18. CALCIUM [Concomitant]
     Indication: MINERAL SUPPLEMENTATION
  19. CYMBALTA [Concomitant]
     Indication: ANXIETY
  20. CYMBALTA [Concomitant]
     Indication: FIBROMYALGIA

REACTIONS (14)
  - Abdominal adhesions [Unknown]
  - Colectomy [Not Recovered/Not Resolved]
  - Drug ineffective [Not Recovered/Not Resolved]
  - Intestinal stenosis [Unknown]
  - Incision site infection [Recovered/Resolved]
  - Vomiting [Unknown]
  - Diarrhoea [Recovering/Resolving]
  - Abdominal pain [Recovered/Resolved]
  - Weight decreased [Unknown]
  - Intestinal obstruction [Recovered/Resolved]
  - Injection site pain [Recovering/Resolving]
  - Hepatic steatosis [Unknown]
  - Liver disorder [Unknown]
  - Somnolence [Unknown]
